FAERS Safety Report 4715042-6 (Version None)
Quarter: 2005Q3

REPORT INFORMATION
  Report Type: 
  Country: None (occurrence: None)
  Receive Date: 20050715
  Receipt Date: 20050708
  Transmission Date: 20060218
  Serious: Yes (Death)
  Sender: FDA-Public Use
  Company Number: US-JNJFOC-20050702340

PATIENT
  Sex: Female

DRUGS (1)
  1. ULTRAM [Suspect]
     Indication: ARTHRITIS
     Route: 048

REACTIONS (1)
  - MYOCARDIAL INFARCTION [None]
